FAERS Safety Report 7835025-7 (Version None)
Quarter: 2011Q4

REPORT INFORMATION
  Report Type: 
  Country: None (occurrence: None)
  Receive Date: 20111024
  Receipt Date: 20111018
  Transmission Date: 20120403
  Serious: Yes (Other)
  Sender: FDA-Public Use
  Company Number: US-PURDUE-USA-2011-0076198

PATIENT
  Sex: Male

DRUGS (1)
  1. BUTRANS [Suspect]
     Indication: PAIN
     Dosage: 20 MCG, Q1H
     Route: 062
     Dates: start: 20110501, end: 20111001

REACTIONS (7)
  - PAIN [None]
  - INCREASED UPPER AIRWAY SECRETION [None]
  - HEART RATE INCREASED [None]
  - DYSPNOEA [None]
  - CHEST DISCOMFORT [None]
  - BLADDER CANCER [None]
  - PROSTATE CANCER [None]
